FAERS Safety Report 22249121 (Version 2)
Quarter: 2023Q2

REPORT INFORMATION
  Report Type: Report from Study
  Country: None (occurrence: GB)
  Receive Date: 20230425
  Receipt Date: 20230512
  Transmission Date: 20230722
  Serious: Yes (Other)
  Sender: FDA-Public Use
  Company Number: GB-Therakind Limited-2140751

PATIENT
  Age: 58 Year
  Sex: Male

DRUGS (2)
  1. METHOTREXATE [Suspect]
     Active Substance: METHOTREXATE
     Indication: Product used for unknown indication
  2. IMRALDI [Suspect]
     Active Substance: ADALIMUMAB

REACTIONS (3)
  - White blood cell count decreased [Unknown]
  - Post-acute COVID-19 syndrome [Unknown]
  - Drug ineffective [Unknown]
